FAERS Safety Report 8390062-1 (Version None)
Quarter: 2012Q2

REPORT INFORMATION
  Report Type: 
  Country: None (occurrence: None)
  Receive Date: 20120529
  Receipt Date: 20120515
  Transmission Date: 20120825
  Serious: Yes (Hospitalization)
  Sender: FDA-Public Use
  Company Number: JP-JNJFOC-20120515480

PATIENT
  Sex: Female
  Weight: 58 kg

DRUGS (4)
  1. REMICADE [Suspect]
     Indication: RHEUMATOID ARTHRITIS
     Dosage: 20 INFUSIONS ADMINISTERED
     Route: 042
     Dates: start: 20081006
  2. REMICADE [Suspect]
     Dosage: 21ST INFUSION
     Route: 042
     Dates: start: 20120204
  3. METHOTREXATE [Suspect]
     Indication: PRODUCT USED FOR UNKNOWN INDICATION
     Dosage: UNKNOWN DOSE DETAILS BEFORE 13-JAN-2006
     Route: 048
     Dates: end: 20120420
  4. AZULFIDINE [Suspect]
     Indication: PRODUCT USED FOR UNKNOWN INDICATION
     Route: 048
     Dates: start: 20081215, end: 20120420

REACTIONS (1)
  - BREAST CANCER STAGE II [None]
